FAERS Safety Report 5472608-6 (Version None)
Quarter: 2007Q4

REPORT INFORMATION
  Report Type: 
  Country: None (occurrence: None)
  Receive Date: 20071001
  Receipt Date: 20061110
  Transmission Date: 20080405
  Serious: Yes (Other)
  Sender: FDA-Public Use
  Company Number: US-ASTRAZENECA-2006AC02155

PATIENT
  Age: 80 Year
  Sex: Female

DRUGS (9)
  1. ANASTROZOLE [Suspect]
     Indication: BREAST CANCER
     Dates: start: 20011101, end: 20040401
  2. PAROXETINE [Concomitant]
  3. OLANZAPINE [Concomitant]
  4. LEVOTHYROXINE SODIUM [Concomitant]
  5. METOPROLOL SUCCINATE [Concomitant]
  6. RABEPRAZOLE SODIUM [Concomitant]
  7. SIMVASTATIN [Concomitant]
  8. IBUPROFEN [Concomitant]
  9. VITAMIN E [Concomitant]

REACTIONS (1)
  - PULMONARY EMBOLISM [None]
